FAERS Safety Report 25408397 (Version 1)
Quarter: 2025Q2

REPORT INFORMATION
  Report Type: Spontaneous
  Country: CA (occurrence: CA)
  Receive Date: 20250606
  Receipt Date: 20250606
  Transmission Date: 20250716
  Serious: Yes (Other)
  Sender: BRISTOL-MYERS SQUIBB COMPANY
  Company Number: CA-BRISTOL-MYERS SQUIBB COMPANY-2025-078744

PATIENT
  Age: 60 Year
  Sex: Male

DRUGS (1)
  1. NIVOLUMAB [Suspect]
     Active Substance: NIVOLUMAB
     Indication: Laryngeal squamous cell carcinoma
     Dates: start: 202102, end: 202203

REACTIONS (3)
  - Aortitis [Unknown]
  - Retroperitoneal fibrosis [Unknown]
  - Ureteric obstruction [Unknown]
